FAERS Safety Report 5009015-6 (Version None)
Quarter: 2006Q2

REPORT INFORMATION
  Report Type: 
  Country: None (occurrence: None)
  Receive Date: 20060518
  Receipt Date: 20060512
  Transmission Date: 20061013
  Serious: Yes (Life-Threatening)
  Sender: FDA-Public Use
  Company Number: DEWYE618812MAY06

PATIENT
  Age: 49 Year
  Sex: Male

DRUGS (1)
  1. VENLAFAXINE HCL [Suspect]
     Indication: DEPRESSION
     Dosage: 150 MG 1X PER 1 DAY
     Route: 048
     Dates: start: 20040201, end: 20040625

REACTIONS (6)
  - BLOOD BILIRUBIN INCREASED [None]
  - BLOOD LACTATE DEHYDROGENASE INCREASED [None]
  - BLOOD SMEAR TEST ABNORMAL [None]
  - HAEMOLYTIC URAEMIC SYNDROME [None]
  - THROMBOTIC THROMBOCYTOPENIC PURPURA [None]
  - WHITE BLOOD CELL COUNT INCREASED [None]
